FAERS Safety Report 4457221-1 (Version None)
Quarter: 2004Q3

REPORT INFORMATION
  Report Type: 
  Country: None (occurrence: None)
  Receive Date: 20040922
  Receipt Date: 20040913
  Transmission Date: 20050211
  Serious: Yes (Death, Other)
  Sender: FDA-Public Use
  Company Number: 2004S1000158

PATIENT
  Age: 82 Year
  Sex: Female
  Weight: 65 kg

DRUGS (10)
  1. CUBICIN [Suspect]
     Indication: DECUBITUS ULCER
     Dosage: 250 MG; Q48H; IV
     Route: 042
     Dates: start: 20040717
  2. CUBICIN [Suspect]
     Indication: STAPHYLOCOCCAL BACTERAEMIA
     Dosage: 250 MG; Q48H; IV
     Route: 042
     Dates: start: 20040717
  3. CUBICIN [Suspect]
     Indication: STAPHYLOCOCCAL INFECTION
     Dosage: 250 MG; Q48H; IV
     Route: 042
     Dates: start: 20040717
  4. VANCOMYCIN [Concomitant]
  5. LINEZOLID [Concomitant]
  6. METRONIDAZOLE [Concomitant]
  7. FLUCONAZOLE [Concomitant]
  8. FUROSEMIDE [Concomitant]
  9. ZAROXOLYN [Concomitant]
  10. MEROPENEM [Concomitant]

REACTIONS (4)
  - ALANINE AMINOTRANSFERASE INCREASED [None]
  - ASPARTATE AMINOTRANSFERASE INCREASED [None]
  - BILIRUBIN CONJUGATED INCREASED [None]
  - HEPATIC CIRRHOSIS [None]
